FAERS Safety Report 6795337-5 (Version None)
Quarter: 2010Q2

REPORT INFORMATION
  Report Type: 
  Country: None (occurrence: None)
  Receive Date: 20100625
  Receipt Date: 20100617
  Transmission Date: 20101027
  Serious: Yes (Hospitalization)
  Sender: FDA-Public Use
  Company Number: US-ASTRAZENECA-2010SE28348

PATIENT
  Age: 80 Year
  Sex: Female
  Weight: 70.8 kg

DRUGS (3)
  1. CRESTOR [Suspect]
     Route: 048
     Dates: start: 20090601
  2. LISINOPRIL [Concomitant]
     Indication: HYPERTENSION
     Route: 048
     Dates: start: 20070101
  3. COREG [Concomitant]
     Indication: CARDIAC DISORDER
     Route: 048
     Dates: start: 20070101

REACTIONS (2)
  - KNEE OPERATION [None]
  - SCIATICA [None]
